FAERS Safety Report 5264080-6 (Version None)
Quarter: 2007Q1

REPORT INFORMATION
  Report Type: 
  Country: None (occurrence: None)
  Receive Date: 20061213
  Receipt Date: 20050107
  Transmission Date: 20070707
  Serious: Yes (Other)
  Sender: FDA-Public Use
  Company Number: 2004UW22679

PATIENT
  Age: 85 Year
  Sex: Female
  Weight: 53.6 kg

DRUGS (4)
  1. IRESSA [Suspect]
     Indication: NON-SMALL CELL LUNG CANCER
     Dosage: 250 MG DAILY PO
     Route: 048
     Dates: start: 20040706
  2. ATENOLOL [Concomitant]
  3. LIPITOR [Concomitant]
  4. ZOMETA [Concomitant]

REACTIONS (5)
  - HAEMORRHAGE [None]
  - PAIN OF SKIN [None]
  - RASH [None]
  - SCAB [None]
  - SKIN EXFOLIATION [None]
